FAERS Safety Report 5261204-1 (Version None)
Quarter: 2007Q1

REPORT INFORMATION
  Report Type: 
  Country: None (occurrence: None)
  Receive Date: 20070309
  Receipt Date: 20070228
  Transmission Date: 20070707
  Serious: Yes (Other)
  Sender: FDA-Public Use
  Company Number: US-PFIZER INC-2007015299

PATIENT
  Sex: Female
  Weight: 71.2 kg

DRUGS (4)
  1. LIPITOR [Suspect]
     Indication: BLOOD CHOLESTEROL INCREASED
  2. FOSAMAX [Concomitant]
  3. ACETYLSALICYLIC ACID SRT [Concomitant]
  4. CALCIUM [Concomitant]

REACTIONS (1)
  - MUSCLE DISORDER [None]
